FAERS Safety Report 19387065 (Version 1)
Quarter: 2021Q2

REPORT INFORMATION
  Report Type: Report from Study
  Country: AR (occurrence: AR)
  Receive Date: 20210607
  Receipt Date: 20210607
  Transmission Date: 20210717
  Serious: Yes (Hospitalization, Other)
  Sender: FDA-Public Use
  Company Number: NVSC2021AR111419

PATIENT
  Age: 69 Year
  Sex: Male

DRUGS (3)
  1. ENALAPRIL [Concomitant]
     Active Substance: ENALAPRIL
     Indication: PRODUCT USED FOR UNKNOWN INDICATION
     Dosage: 10 MG, BID (SINCE MANY YEARS AGO)
     Route: 065
  2. NEORAL [Suspect]
     Active Substance: CYCLOSPORINE
     Indication: IMMUNOSUPPRESSION
     Dosage: 150 MG, BID
     Route: 048
     Dates: start: 20200316
  3. INSULIN [Concomitant]
     Active Substance: INSULIN NOS
     Indication: DIABETES MELLITUS
     Dosage: UNK, BID (SINCE MANY YEARS AGO)
     Route: 065

REACTIONS (7)
  - Localised infection [Recovering/Resolving]
  - Cough [Recovered/Resolved]
  - Furuncle [Unknown]
  - Kidney transplant rejection [Unknown]
  - Diarrhoea [Recovered/Resolved]
  - Purulent discharge [Unknown]
  - Condition aggravated [Unknown]

NARRATIVE: CASE EVENT DATE: 20210401
